FAERS Safety Report 5274812-9 (Version None)
Quarter: 2007Q1

REPORT INFORMATION
  Report Type: 
  Country: None (occurrence: None)
  Receive Date: 20070321
  Receipt Date: 20070104
  Transmission Date: 20070707
  Serious: Yes (Other)
  Sender: FDA-Public Use
  Company Number: 233314K06USA

PATIENT
  Age: 32 Year
  Sex: Female

DRUGS (1)
  1. REBIF [Suspect]
     Indication: MULTIPLE SCLEROSIS
     Dosage: 22 MCG
     Dates: start: 20050527, end: 20050101

REACTIONS (1)
  - CONVULSION [None]
